FAERS Safety Report 9411507 (Version 3)
Quarter: 2013Q3

REPORT INFORMATION
  Report Type: Report from Study
  Country: JP (occurrence: JP)
  Receive Date: 20130722
  Receipt Date: 20130919
  Transmission Date: 20140515
  Serious: Yes (Death, Hospitalization)
  Sender: FDA-Public Use
  Company Number: JP-ROCHE-1249754

PATIENT
  Age: 80 Year
  Sex: Male

DRUGS (1)
  1. METHOXY POLYETHYLENE GLYCOL-EPOETIN BETA [Suspect]
     Indication: NEPHROGENIC ANAEMIA
     Route: 042
     Dates: start: 20130110, end: 20130304

REACTIONS (3)
  - Asphyxia [Fatal]
  - Brain stem infarction [Recovering/Resolving]
  - Pneumonia aspiration [Recovered/Resolved]
